FAERS Safety Report 7037007-4 (Version None)
Quarter: 2010Q4

REPORT INFORMATION
  Report Type: 
  Country: None (occurrence: None)
  Receive Date: 20101011
  Receipt Date: 20100928
  Transmission Date: 20110411
  Serious: Yes (Other)
  Sender: FDA-Public Use
  Company Number: US-ELI_LILLY_AND_COMPANY-US201009006205

PATIENT
  Sex: Female

DRUGS (9)
  1. CYMBALTA [Suspect]
     Indication: DEPRESSION
     Dosage: UNK, UNKNOWN
  2. CYMBALTA [Suspect]
     Dosage: 30 MG, UNK
     Dates: start: 20100101
  3. CYMBALTA [Suspect]
     Dosage: 60 MG, 2/D
  4. CYMBALTA [Suspect]
     Dosage: 150 MG, UNK
     Dates: end: 20100901
  5. DIOVAN [Concomitant]
  6. LIPITOR [Concomitant]
  7. SYNTHROID [Concomitant]
     Dosage: 50 UG, UNK
  8. LITHIUM [Concomitant]
  9. ASPIRIN [Concomitant]

REACTIONS (10)
  - BLOOD PRESSURE INCREASED [None]
  - FALL [None]
  - FEELING ABNORMAL [None]
  - LIVER DISORDER [None]
  - OVERDOSE [None]
  - RENAL DISORDER [None]
  - SENSATION OF HEAVINESS [None]
  - SKIN LACERATION [None]
  - SYNCOPE [None]
  - URINE COLOUR ABNORMAL [None]
